FAERS Safety Report 10378109 (Version 2)
Quarter: 2014Q4

REPORT INFORMATION
  Report Type: Spontaneous
  Country: AU (occurrence: AU)
  Receive Date: 20140812
  Receipt Date: 20141027
  Transmission Date: 20150528
  Serious: Yes (Other)
  Sender: FDA-Public Use
  Company Number: AU-009507513-1408AUS003736

PATIENT
  Age: 48 Year
  Sex: Male

DRUGS (11)
  1. ACETAMINOPHEN. [Concomitant]
     Active Substance: ACETAMINOPHEN
  2. SENNA [Concomitant]
     Active Substance: SENNA LEAF\SENNOSIDES\SENNOSIDES A AND B
  3. COLOXYL [Concomitant]
     Active Substance: DOCUSATE SODIUM
  4. ERTAPENEM SODIUM [Suspect]
     Active Substance: ERTAPENEM SODIUM
     Indication: ENTEROBACTER INFECTION
     Dosage: 1 G DAILY
  5. VANCOMYCIN [Concomitant]
     Active Substance: VANCOMYCIN
     Indication: ENTEROBACTER INFECTION
  6. FENTANYL. [Concomitant]
     Active Substance: FENTANYL
  7. GENTAMICIN. [Concomitant]
     Active Substance: GENTAMICIN
     Indication: ENTEROBACTER INFECTION
  8. SERTRALINE HYDROCHLORIDE. [Concomitant]
     Active Substance: SERTRALINE HYDROCHLORIDE
     Indication: DEPRESSION
     Dosage: 50 MG, QD
  9. OXYCONTIN [Concomitant]
     Active Substance: OXYCODONE HYDROCHLORIDE
  10. CLAVULANATE POTASSIUM (+) TICARCILLIN DISODIUM [Concomitant]
     Indication: ENTEROBACTER INFECTION
     Dosage: 3.1 G, Q6H
  11. RANITIDINE [Concomitant]
     Active Substance: RANITIDINE\RANITIDINE HYDROCHLORIDE

REACTIONS (2)
  - Substance-induced psychotic disorder [Recovered/Resolved]
  - Toxic encephalopathy [Recovered/Resolved]
